FAERS Safety Report 22221969 (Version 2)
Quarter: 2023Q2

REPORT INFORMATION
  Report Type: Spontaneous
  Country: US (occurrence: US)
  Receive Date: 20230418
  Receipt Date: 20230503
  Transmission Date: 20230722
  Serious: Yes (Hospitalization, Other)
  Sender: FDA-Public Use
  Company Number: US-TERSERA THERAPEUTICS LLC-2023TRS001664

PATIENT

DRUGS (2)
  1. XERMELO [Suspect]
     Active Substance: TELOTRISTAT ETHYL
     Indication: Carcinoid syndrome
     Dosage: 250 MG, TID, 1 TABLET BY MOUTH 3 TIMES DAILY
     Route: 048
     Dates: start: 20221019
  2. XERMELO [Suspect]
     Active Substance: TELOTRISTAT ETHYL
     Dosage: 250 MG, QD
     Route: 048

REACTIONS (4)
  - Anaemia [Unknown]
  - COVID-19 [Unknown]
  - Fall [Unknown]
  - Pyrexia [Unknown]

NARRATIVE: CASE EVENT DATE: 20230401
